FAERS Safety Report 6608885-5 (Version None)
Quarter: 2010Q1

REPORT INFORMATION
  Report Type: 
  Country: None (occurrence: None)
  Receive Date: 20100301
  Receipt Date: 20100218
  Transmission Date: 20100710
  Serious: Yes (Other)
  Sender: FDA-Public Use
  Company Number: US-BAXTER-2010BH004276

PATIENT
  Age: 63 Year
  Sex: Male

DRUGS (1)
  1. EXTRANEAL [Suspect]
     Indication: PERITONEAL DIALYSIS
     Route: 033

REACTIONS (5)
  - CONFUSIONAL STATE [None]
  - DEVICE INTERACTION [None]
  - HYPERGLYCAEMIA [None]
  - HYPERHIDROSIS [None]
  - MALAISE [None]
